FAERS Safety Report 7650358-5 (Version None)
Quarter: 2011Q3

REPORT INFORMATION
  Report Type: 
  Country: None (occurrence: None)
  Receive Date: 20110727
  Receipt Date: 20110712
  Transmission Date: 20111222
  Serious: Yes (Hospitalization)
  Sender: FDA-Public Use
  Company Number: GER/UKI/09/0006705

PATIENT
  Age: 24 Year
  Sex: Female

DRUGS (5)
  1. ETHANOL (ETHANOL) [Suspect]
     Indication: PRODUCT USED FOR UNKNOWN INDICATION
     Dosage: TWO 750 ML BOTTLES OF WINE PER EVENING, ORAL
     Route: 048
  2. MIRTAZAPINE [Concomitant]
  3. LAMOTRIGINE [Suspect]
     Indication: PSYCHOTIC DISORDER
     Dosage: 4200 MG, 2 IN 1 ONCE, ORAL, 100 MG, 2 IN 1 D
     Route: 048
     Dates: start: 20070301, end: 20070301
  4. RISPERIDONE [Suspect]
     Indication: DEPRESSION
     Dosage: 2 MG, 2 IN 1 D
  5. RISPERIDONE [Suspect]
     Indication: PSYCHOTIC DISORDER
     Dosage: 2 MG, 2 IN 1 D

REACTIONS (11)
  - LETHARGY [None]
  - DEHYDRATION [None]
  - SINUS TACHYCARDIA [None]
  - PANCREATITIS ACUTE [None]
  - MULTIPLE DRUG OVERDOSE INTENTIONAL [None]
  - NYSTAGMUS [None]
  - DYSARTHRIA [None]
  - ATAXIA [None]
  - METABOLIC ACIDOSIS [None]
  - GALLBLADDER DISORDER [None]
  - INTENTIONAL DRUG MISUSE [None]
